FAERS Safety Report 5050781-1 (Version None)
Quarter: 2006Q3

REPORT INFORMATION
  Report Type: 
  Country: None (occurrence: None)
  Receive Date: 20060710
  Receipt Date: 20060628
  Transmission Date: 20061208
  Serious: Yes (Other)
  Sender: FDA-Public Use
  Company Number: 2006065226

PATIENT
  Age: 66 Year
  Sex: Male

DRUGS (5)
  1. NEURONTIN [Suspect]
     Indication: PAIN
     Dosage: 600 MG (100 MG, 6 IN 1 D), ORAL
     Route: 048
     Dates: start: 20060101, end: 20060322
  2. IMOVANE (ZOPICLONE) [Concomitant]
  3. NEXIUM [Concomitant]
  4. PROZAC [Concomitant]
  5. INSULATARD NPH HUMAN [Concomitant]

REACTIONS (4)
  - CHOLESTASIS [None]
  - CONDITION AGGRAVATED [None]
  - CYTOLYTIC HEPATITIS [None]
  - LIVER DISORDER [None]
